FAERS Safety Report 18163988 (Version 8)
Quarter: 2021Q2

REPORT INFORMATION
  Report Type: Spontaneous
  Country: US (occurrence: US)
  Receive Date: 20200818
  Receipt Date: 20210507
  Transmission Date: 20210717
  Serious: Yes (Other)
  Sender: FDA-Public Use
  Company Number: US-BIOCODEX SA-202000977

PATIENT

DRUGS (50)
  1. DIACOMIT [Suspect]
     Active Substance: STIRIPENTOL
     Indication: LENNOX-GASTAUT SYNDROME
     Dosage: 500MG; 1000 MG TWICE??A DAY
     Route: 065
     Dates: start: 20200530
  2. DIACOMIT [Suspect]
     Active Substance: STIRIPENTOL
     Dosage: 500MG; 1000 MG TWICE??A DAY
     Route: 065
  3. PREDNISONE. [Concomitant]
     Active Substance: PREDNISONE
     Route: 065
  4. BRIVIACT [Concomitant]
     Active Substance: BRIVARACETAM
     Route: 065
  5. EPIDIOLEX [Concomitant]
     Active Substance: CANNABIDIOL
     Indication: PRODUCT USED FOR UNKNOWN INDICATION
     Route: 065
  6. ETHOSUXIMIDE. [Concomitant]
     Active Substance: ETHOSUXIMIDE
     Route: 065
  7. LAMOTRIGINE. [Concomitant]
     Active Substance: LAMOTRIGINE
     Route: 065
  8. PHENOBARBITAL. [Concomitant]
     Active Substance: PHENOBARBITAL
     Indication: PRODUCT USED FOR UNKNOWN INDICATION
     Route: 065
  9. TRILEPTAL [Concomitant]
     Active Substance: OXCARBAZEPINE
     Indication: PRODUCT USED FOR UNKNOWN INDICATION
     Route: 065
  10. DIACOMIT [Suspect]
     Active Substance: STIRIPENTOL
     Dosage: 1000MG IN THE MORNING AND 1000MG AT NIGHT
     Route: 065
  11. BRIVIACT [Concomitant]
     Active Substance: BRIVARACETAM
     Indication: PRODUCT USED FOR UNKNOWN INDICATION
     Route: 065
  12. ETHOSUXIMIDE. [Concomitant]
     Active Substance: ETHOSUXIMIDE
     Indication: PRODUCT USED FOR UNKNOWN INDICATION
     Route: 065
  13. HCTZ [Concomitant]
     Active Substance: HYDROCHLOROTHIAZIDE
     Indication: PRODUCT USED FOR UNKNOWN INDICATION
     Route: 065
  14. PREDNISONE. [Concomitant]
     Active Substance: PREDNISONE
     Route: 065
  15. PHENOBARBITAL. [Concomitant]
     Active Substance: PHENOBARBITAL
     Route: 065
  16. TRILEPTAL [Concomitant]
     Active Substance: OXCARBAZEPINE
     Route: 065
  17. TRILEPTAL [Concomitant]
     Active Substance: OXCARBAZEPINE
     Route: 065
  18. FUROSEMIDE. [Concomitant]
     Active Substance: FUROSEMIDE
     Indication: PRODUCT USED FOR UNKNOWN INDICATION
     Route: 065
  19. TOPAMAX [Concomitant]
     Active Substance: TOPIRAMATE
     Indication: PRODUCT USED FOR UNKNOWN INDICATION
     Route: 065
  20. DEPAKOTE [Concomitant]
     Active Substance: DIVALPROEX SODIUM
     Indication: PRODUCT USED FOR UNKNOWN INDICATION
     Route: 065
  21. FYCOMPA [Concomitant]
     Active Substance: PERAMPANEL
     Indication: PRODUCT USED FOR UNKNOWN INDICATION
     Route: 065
  22. ONFI [Concomitant]
     Active Substance: CLOBAZAM
     Route: 065
  23. ONFI [Concomitant]
     Active Substance: CLOBAZAM
     Route: 065
  24. VIMPAT [Concomitant]
     Active Substance: LACOSAMIDE
     Route: 065
  25. ZONISAMIDE. [Concomitant]
     Active Substance: ZONISAMIDE
     Route: 065
  26. ZONISAMIDE. [Concomitant]
     Active Substance: ZONISAMIDE
     Route: 065
  27. SPIRONOLACTONE. [Concomitant]
     Active Substance: SPIRONOLACTONE
     Indication: PRODUCT USED FOR UNKNOWN INDICATION
     Route: 065
  28. CLOBAZAM. [Concomitant]
     Active Substance: CLOBAZAM
     Route: 065
  29. EPIDIOLEX [Concomitant]
     Active Substance: CANNABIDIOL
     Route: 065
  30. KEPPRA [Concomitant]
     Active Substance: LEVETIRACETAM
     Route: 065
  31. LYRICA [Concomitant]
     Active Substance: PREGABALIN
     Route: 065
  32. LYRICA [Concomitant]
     Active Substance: PREGABALIN
     Route: 065
  33. ZONISAMIDE. [Concomitant]
     Active Substance: ZONISAMIDE
     Indication: PRODUCT USED FOR UNKNOWN INDICATION
     Route: 065
  34. FUROSEMIDE. [Concomitant]
     Active Substance: FUROSEMIDE
     Route: 065
  35. DIACOMIT [Suspect]
     Active Substance: STIRIPENTOL
     Dosage: 1000 MG TWICE DAILY
     Route: 065
  36. KEPPRA [Concomitant]
     Active Substance: LEVETIRACETAM
     Indication: PRODUCT USED FOR UNKNOWN INDICATION
     Route: 065
  37. CLOBAZAM. [Concomitant]
     Active Substance: CLOBAZAM
     Indication: PRODUCT USED FOR UNKNOWN INDICATION
     Route: 065
  38. ONFI [Concomitant]
     Active Substance: CLOBAZAM
     Indication: PRODUCT USED FOR UNKNOWN INDICATION
     Route: 065
  39. HCTZ [Concomitant]
     Active Substance: HYDROCHLOROTHIAZIDE
     Route: 065
  40. SPIRONOLACTONE. [Concomitant]
     Active Substance: SPIRONOLACTONE
     Route: 065
  41. TOPAMAX [Concomitant]
     Active Substance: TOPIRAMATE
     Route: 065
  42. DEPAKOTE [Concomitant]
     Active Substance: DIVALPROEX SODIUM
     Route: 065
  43. SIROLIMUS. [Concomitant]
     Active Substance: SIROLIMUS
     Indication: PRODUCT USED FOR UNKNOWN INDICATION
     Dosage: 1 MG
     Route: 065
  44. PREDNISONE. [Concomitant]
     Active Substance: PREDNISONE
     Indication: PRODUCT USED FOR UNKNOWN INDICATION
     Dosage: UNK
     Route: 065
  45. FYCOMPA [Concomitant]
     Active Substance: PERAMPANEL
     Route: 065
  46. LAMOTRIGINE. [Concomitant]
     Active Substance: LAMOTRIGINE
     Indication: PRODUCT USED FOR UNKNOWN INDICATION
     Route: 065
  47. LAMOTRIGINE. [Concomitant]
     Active Substance: LAMOTRIGINE
     Route: 065
  48. LYRICA [Concomitant]
     Active Substance: PREGABALIN
     Indication: PRODUCT USED FOR UNKNOWN INDICATION
     Route: 065
  49. VIMPAT [Concomitant]
     Active Substance: LACOSAMIDE
     Indication: PRODUCT USED FOR UNKNOWN INDICATION
     Route: 065
  50. VIMPAT [Concomitant]
     Active Substance: LACOSAMIDE
     Route: 065

REACTIONS (9)
  - Aspartate aminotransferase increased [Unknown]
  - Oedema peripheral [Unknown]
  - Product use in unapproved indication [Unknown]
  - Arthralgia [Unknown]
  - Oedema [Unknown]
  - Cellulitis [Unknown]
  - Somnolence [Unknown]
  - Balance disorder [Unknown]
  - Upper limb fracture [Unknown]

NARRATIVE: CASE EVENT DATE: 202008
